FAERS Safety Report 8846955 (Version 1)
Quarter: 2012Q4

REPORT INFORMATION
  Report Type: Spontaneous
  Country: US (occurrence: None)
  Receive Date: 20121016
  Receipt Date: 20121016
  Transmission Date: 20130627
  Serious: Yes (Hospitalization, Other)
  Sender: FDA-Public Use
  Company Number: VAL_00921_2012

PATIENT
  Age: 33 Year
  Sex: Female

DRUGS (6)
  1. PARLODEL [Suspect]
     Indication: PRODUCT USED FOR UNKNOWN INDICATION
     Dosage: 2 weeks 1 day
  2. IBUPROFEN [Concomitant]
  3. PAROXETINE HYDROCHLORIDE [Concomitant]
  4. NAPROXEN [Concomitant]
  5. DOXEPIN HYDROCHLORIDE [Concomitant]
  6. ALPRAZOLAM [Concomitant]

REACTIONS (4)
  - Postpartum depression [None]
  - Haemorrhagic infarction [None]
  - Hypertension [None]
  - Cerebrovascular accident [None]
